FAERS Safety Report 11091237 (Version 1)
Quarter: 2015Q2

REPORT INFORMATION
  Report Type: Spontaneous
  Country: US (occurrence: None)
  Receive Date: 20150504
  Receipt Date: 20150504
  Transmission Date: 20150821
  Serious: Yes (Disabling)
  Sender: FDA-Public Use
  Company Number: None

PATIENT
  Age: 54 Year
  Sex: Male
  Weight: 83.92 kg

DRUGS (13)
  1. BUPROPION XL [Concomitant]
     Active Substance: BUPROPION
  2. ALPRAZOLAM. [Concomitant]
     Active Substance: ALPRAZOLAM
  3. FLEKTOR PATCHES [Concomitant]
  4. OPANA [Suspect]
     Active Substance: OXYMORPHONE HYDROCHLORIDE
     Indication: ANALGESIC THERAPY
  5. TOPIRIMATE [Concomitant]
  6. VITAMIN C [Concomitant]
     Active Substance: ASCORBIC ACID
  7. VITAMIN D [Concomitant]
     Active Substance: CHOLECALCIFEROL
  8. OPANA [Suspect]
     Active Substance: OXYMORPHONE HYDROCHLORIDE
     Indication: INTERVERTEBRAL DISC OPERATION
  9. OPANA [Suspect]
     Active Substance: OXYMORPHONE HYDROCHLORIDE
     Indication: POSTOPERATIVE CARE
  10. VITAMIN B [Concomitant]
     Active Substance: VITAMIN B
  11. ZOLPIDEM [Concomitant]
     Active Substance: ZOLPIDEM\ZOLPIDEM TARTRATE
  12. HYDROCODONE/ACETAMINOPHEN [Concomitant]
     Active Substance: ACETAMINOPHEN\HYDROCODONE
  13. METHADONE [Concomitant]
     Active Substance: METHADONE HYDROCHLORIDE

REACTIONS (12)
  - Pain [None]
  - Feeling abnormal [None]
  - Impaired driving ability [None]
  - Feeling of despair [None]
  - Therapy cessation [None]
  - Musculoskeletal pain [None]
  - Spinal pain [None]
  - Pain in extremity [None]
  - Arthralgia [None]
  - Insomnia [None]
  - Discomfort [None]
  - Musculoskeletal chest pain [None]

NARRATIVE: CASE EVENT DATE: 20150224
